FAERS Safety Report 6070329-2 (Version None)
Quarter: 2009Q1

REPORT INFORMATION
  Report Type: 
  Country: None (occurrence: None)
  Receive Date: 20090209
  Receipt Date: 20090109
  Transmission Date: 20090719
  Serious: No
  Sender: FDA-Public Use
  Company Number: US-BAYER-200910090BCC

PATIENT
  Age: 65 Year
  Sex: Female
  Weight: 64 kg

DRUGS (1)
  1. ALEVE [Suspect]
     Indication: BACK PAIN
     Dosage: UNIT DOSE: 220 MG
     Dates: start: 20080501, end: 20090108

REACTIONS (5)
  - ABDOMINAL PAIN UPPER [None]
  - BLISTER [None]
  - BURNING SENSATION [None]
  - SOMNOLENCE [None]
  - URTICARIA [None]
